FAERS Safety Report 4322911-8 (Version None)
Quarter: 2004Q1

REPORT INFORMATION
  Report Type: 
  Country: None (occurrence: None)
  Receive Date: 20040322
  Receipt Date: 20040115
  Transmission Date: 20041129
  Serious: Yes (Other)
  Sender: FDA-Public Use
  Company Number: 2004003252

PATIENT

DRUGS (2)
  1. VFEND [Suspect]
     Indication: ILL-DEFINED DISORDER
  2. ANTHRACYCLINES [Suspect]
     Indication: ILL-DEFINED DISORDER

REACTIONS (1)
  - CARDIAC FAILURE [None]
